FAERS Safety Report 17999523 (Version 1)
Quarter: 2020Q3

REPORT INFORMATION
  Report Type: Spontaneous
  Country: US (occurrence: US)
  Receive Date: 20200709
  Receipt Date: 20200709
  Transmission Date: 20201103
  Serious: No
  Sender: FDA-Public Use
  Company Number: None

PATIENT
  Age: 72 Year
  Sex: Female
  Weight: 81 kg

DRUGS (8)
  1. IRON [Concomitant]
     Active Substance: IRON
  2. CYMBALTA [Concomitant]
     Active Substance: DULOXETINE HYDROCHLORIDE
  3. HCTZ [Concomitant]
     Active Substance: HYDROCHLOROTHIAZIDE
  4. GABAPENTIN. [Concomitant]
     Active Substance: GABAPENTIN
  5. MAGNESIUM [Concomitant]
     Active Substance: MAGNESIUM
  6. TURMERIC [Concomitant]
     Active Substance: HERBALS\TURMERIC
  7. BUPRENORPHINE. [Suspect]
     Active Substance: BUPRENORPHINE
     Indication: PAIN
     Dosage: ?          QUANTITY:4 PATCHES;OTHER FREQUENCY:WEEKLY;?
     Route: 061
     Dates: start: 20190101
  8. DHEA [Concomitant]
     Active Substance: PRASTERONE

REACTIONS (4)
  - Application site vesicles [None]
  - Application site pruritus [None]
  - Wound [None]
  - Application site exfoliation [None]

NARRATIVE: CASE EVENT DATE: 20200101
